FAERS Safety Report 8815083 (Version 1)
Quarter: 2012Q4

REPORT INFORMATION
  Report Type: 
  Country: US (occurrence: US)
  Receive Date: 20120928
  Receipt Date: 20120928
  Transmission Date: 20130627
  Serious: Yes (Hospitalization)
  Sender: FDA-Public Use
  Company Number: US-TEVA-360817USA

PATIENT
  Age: 43 Year
  Sex: Female

DRUGS (1)
  1. COPAXONE [Suspect]
     Indication: MULTIPLE SCLEROSIS
     Dates: end: 20120814

REACTIONS (3)
  - Umbilical hernia repair [Recovering/Resolving]
  - Hysterectomy [Recovering/Resolving]
  - Pelvic floor repair [Recovering/Resolving]
